FAERS Safety Report 9146779 (Version 2)
Quarter: 2013Q2

REPORT INFORMATION
  Report Type: Report from Study
  Country: IE (occurrence: IE)
  Receive Date: 20130307
  Receipt Date: 20130415
  Transmission Date: 20140414
  Serious: Yes (Hospitalization)
  Sender: FDA-Public Use
  Company Number: IE-ASTRAZENECA-2013SE14628

PATIENT
  Age: 2 Month
  Sex: 0

DRUGS (1)
  1. SYNAGIS [Suspect]
     Route: 030
     Dates: start: 20130129

REACTIONS (2)
  - Respiratory syncytial virus infection [Unknown]
  - Pertussis [Unknown]
